FAERS Safety Report 4943588-4 (Version None)
Quarter: 2006Q1

REPORT INFORMATION
  Report Type: 
  Country: None (occurrence: None)
  Receive Date: 20060310
  Receipt Date: 20060223
  Transmission Date: 20060701
  Serious: Yes (Hospitalization, Other)
  Sender: FDA-Public Use
  Company Number: GBR-2006-0002141

PATIENT
  Age: 86 Year
  Sex: Female

DRUGS (4)
  1. HYDROMORPHONE  HCL (HYDROMOR [Suspect]
     Indication: OSTEOARTHRITIS
     Dosage: 8 MG, DAILY, ORAL
     Route: 048
     Dates: start: 20031208, end: 20051222
  2. RABEPRAZOLE SODIUM [Suspect]
     Dosage: 10 MG,
     Dates: start: 20031208, end: 20051220
  3. NEO-MERCAZOLE TAB [Concomitant]
  4. BUMETANIDE [Concomitant]

REACTIONS (3)
  - CONFUSIONAL STATE [None]
  - LEUKOARAIOSIS [None]
  - VASCULAR DEMENTIA [None]
